FAERS Safety Report 11199800 (Version 1)
Quarter: 2015Q2

REPORT INFORMATION
  Report Type: Report from Study
  Country: BE (occurrence: BE)
  Receive Date: 20150618
  Receipt Date: 20150618
  Transmission Date: 20150821
  Serious: Yes (Hospitalization)
  Sender: FDA-Public Use
  Company Number: BE-GLAXOSMITHKLINE INC.-BE2015082301

PATIENT
  Age: 57 Year
  Sex: Male
  Weight: 78 kg

DRUGS (4)
  1. BENDAMUSTINE [Suspect]
     Active Substance: BENDAMUSTINE
     Indication: NON-HODGKIN^S LYMPHOMA
     Dosage: 90 MG/M2, CYC
     Dates: start: 20150408
  2. SOLU-MEDROL [Concomitant]
     Active Substance: METHYLPREDNISOLONE SODIUM SUCCINATE
     Indication: PREMEDICATION
     Route: 042
     Dates: start: 20150610, end: 20150610
  3. OFATUMUMAB [Suspect]
     Active Substance: OFATUMUMAB
     Indication: NON-HODGKIN^S LYMPHOMA
     Dosage: 1000 MG, CYC
     Route: 042
     Dates: start: 20150408
  4. LITICAN [Concomitant]
     Active Substance: ALIZAPRIDE HYDROCHLORIDE
     Indication: PROPHYLAXIS OF NAUSEA AND VOMITING
     Dosage: 100 MG, SINGLE
     Route: 042
     Dates: start: 20150610, end: 20150610

REACTIONS (1)
  - Vomiting [Not Recovered/Not Resolved]

NARRATIVE: CASE EVENT DATE: 20150610
